FAERS Safety Report 9792157 (Version 1)
Quarter: 2014Q1

REPORT INFORMATION
  Report Type: Report from Study
  Country: LB (occurrence: LB)
  Receive Date: 20140102
  Receipt Date: 20140102
  Transmission Date: 20141002
  Serious: Yes (Hospitalization)
  Sender: FDA-Public Use
  Company Number: LB-SA-2013SA135752

PATIENT
  Age: 68 Year
  Sex: Female

DRUGS (8)
  1. LANTUS SOLOSTAR [Suspect]
     Indication: DIABETES MELLITUS
     Dosage: DOSE:10 UNIT(S)
     Route: 058
     Dates: start: 2013
  2. GALVUSMET [Concomitant]
     Indication: DIABETES MELLITUS
     Route: 048
  3. DIAMICRON [Concomitant]
     Indication: DIABETES MELLITUS
     Route: 048
  4. COAPROVEL [Concomitant]
     Route: 048
  5. ATORVASTATIN [Concomitant]
     Route: 048
  6. LANZOR [Concomitant]
     Route: 048
  7. ASPICOT [Concomitant]
     Route: 048
  8. SOLOSTAR [Concomitant]
     Indication: DEVICE THERAPY
     Dates: start: 2013

REACTIONS (2)
  - Dyspnoea [Unknown]
  - Fatigue [Unknown]
